FAERS Safety Report 4316961-5 (Version None)
Quarter: 2004Q1

REPORT INFORMATION
  Report Type: 
  Country: None (occurrence: None)
  Receive Date: 20040312
  Receipt Date: 20040302
  Transmission Date: 20041129
  Serious: Yes (Hospitalization, Other)
  Sender: FDA-Public Use
  Company Number: 2004-03-0129

PATIENT
  Age: 62 Year
  Sex: Male

DRUGS (1)
  1. INTRON A [Suspect]
     Indication: MALIGNANT MELANOMA
     Dosage: TIW SUBCUTANEOUS
     Route: 058
     Dates: start: 20030801

REACTIONS (6)
  - ABDOMINAL PAIN [None]
  - BLOOD POTASSIUM DECREASED [None]
  - DYSARTHRIA [None]
  - INFLUENZA LIKE ILLNESS [None]
  - RETCHING [None]
  - VOMITING [None]
